FAERS Safety Report 8471150-8 (Version None)
Quarter: 2012Q2

REPORT INFORMATION
  Report Type: 
  Country: None (occurrence: None)
  Receive Date: 20120627
  Receipt Date: 20120621
  Transmission Date: 20120825
  Serious: Yes (Hospitalization, Other)
  Sender: FDA-Public Use
  Company Number: US-PFIZER INC-2012113223

PATIENT
  Sex: Female

DRUGS (3)
  1. MEDROL [Suspect]
     Indication: RHEUMATOID ARTHRITIS
     Dosage: UNK
  2. METHOTREXATE SODIUM [Suspect]
     Indication: RHEUMATOID ARTHRITIS
     Dosage: UNK
  3. DILAUDID [Suspect]
     Dosage: UNK

REACTIONS (8)
  - JOINT DISLOCATION [None]
  - BONE DISORDER [None]
  - INFLAMMATION [None]
  - ARTHRITIS BACTERIAL [None]
  - WHITE BLOOD CELL COUNT INCREASED [None]
  - POISONING [None]
  - DRUG INEFFECTIVE [None]
  - RHEUMATOID ARTHRITIS [None]
